FAERS Safety Report 23296407 (Version 1)
Quarter: 2023Q4

REPORT INFORMATION
  Report Type: Spontaneous
  Country: US (occurrence: None)
  Receive Date: 20231214
  Receipt Date: 20231214
  Transmission Date: 20240109
  Serious: Yes (Hospitalization)
  Sender: FDA-Public Use
  Company Number: None

PATIENT
  Age: 13 Year
  Sex: Male
  Weight: 40 kg

DRUGS (4)
  1. BLEOMYCIN [Suspect]
     Active Substance: BLEOMYCIN SULFATE
  2. CISPLATIN [Concomitant]
  3. ETOPOSIDE [Concomitant]
     Active Substance: ETOPOSIDE
  4. FILGRASTIM [Concomitant]
     Active Substance: FILGRASTIM

REACTIONS (10)
  - Dyspnoea [None]
  - Chest pain [None]
  - Atelectasis [None]
  - Pleural effusion [None]
  - Loss of consciousness [None]
  - Respiratory failure [None]
  - Mass [None]
  - Mediastinal mass [None]
  - Tracheal compression [None]
  - Hypoxia [None]

NARRATIVE: CASE EVENT DATE: 20231110
